FAERS Safety Report 5225089-1 (Version None)
Quarter: 2007Q1

REPORT INFORMATION
  Report Type: 
  Country: None (occurrence: None)
  Receive Date: 20070129
  Receipt Date: 20070112
  Transmission Date: 20070707
  Serious: Yes (Hospitalization)
  Sender: FDA-Public Use
  Company Number: DSA_29252_2007

PATIENT
  Sex: Female

DRUGS (7)
  1. TEMESTA [Suspect]
     Indication: ANXIETY DISORDER
     Dosage: DF PO
     Route: 048
  2. BUPRENORPHINE HCL [Suspect]
     Indication: PAIN
     Dosage: DF
  3. MORPHINE [Suspect]
     Indication: PAIN
     Dosage: DF
  4. TRAMADOL HCL [Suspect]
     Indication: PAIN
     Dosage: DF
  5. NEURONTIN [Concomitant]
  6. LIORESAL [Concomitant]
  7. DAFALGAN [Concomitant]

REACTIONS (4)
  - APNOEA [None]
  - CONFUSIONAL STATE [None]
  - HALLUCINATION, VISUAL [None]
  - MYOCLONUS [None]
